FAERS Safety Report 26095353 (Version 1)
Quarter: 2025Q4

REPORT INFORMATION
  Report Type: Spontaneous
  Country: CN (occurrence: CN)
  Receive Date: 20251127
  Receipt Date: 20251127
  Transmission Date: 20260117
  Serious: Yes (Other)
  Sender: ACCORD
  Company Number: None

PATIENT
  Age: 25 Year
  Sex: Female
  Weight: 46 kg

DRUGS (8)
  1. TRASTUZUMAB [Suspect]
     Active Substance: TRASTUZUMAB
     Indication: Breast cancer
     Dosage: 270 MILLIGRAM, QD , IV DRIP, STRENGTH: 150 MG
     Route: 042
     Dates: start: 20251017, end: 20251017
  2. CARBOPLATIN [Suspect]
     Active Substance: CARBOPLATIN
     Indication: Breast cancer
     Dosage: 600 MILLIGRAM, QD, IV DRIP, REGIMEN
     Dates: start: 20251018, end: 20251018
  3. PERTUZUMAB [Suspect]
     Active Substance: PERTUZUMAB
     Indication: Breast cancer
     Dosage: 420 MILLIGRAM, QD, IV DRIP, REGIMEN 1
     Route: 042
     Dates: start: 20251017, end: 20251017
  4. DOCETAXEL [Suspect]
     Active Substance: DOCETAXEL
     Indication: Breast cancer
     Dosage: 80 MILLIGRAM, QD, IV DRIP, REGIMEN 1
     Route: 042
     Dates: start: 20251018, end: 20251018
  5. DOCETAXEL [Suspect]
     Active Substance: DOCETAXEL
     Indication: Breast cancer
     Dosage: UNK, IV DRIP, REGIMEN 2
     Route: 042
     Dates: start: 20251111, end: 20251111
  6. CARBOPLATIN [Suspect]
     Active Substance: CARBOPLATIN
     Indication: Breast cancer
     Dosage: UNK, IV DRIP, REGIMEN 2
     Route: 042
     Dates: start: 20251111, end: 20251111
  7. TRASTUZUMAB [Suspect]
     Active Substance: TRASTUZUMAB
     Indication: Breast cancer
     Dosage: UNKNOWN, IV DRIP, STRENGTH: 150 MG, REGIMEN 2
     Route: 042
     Dates: start: 20251111, end: 20251111
  8. PERTUZUMAB [Suspect]
     Active Substance: PERTUZUMAB
     Indication: Breast cancer
     Dosage: UNK, IV DRIP, REGIMEN 2
     Route: 042
     Dates: start: 20251111, end: 20251111

REACTIONS (1)
  - Myelosuppression [Recovering/Resolving]

NARRATIVE: CASE EVENT DATE: 20251106
